FAERS Safety Report 9924062 (Version 1)
Quarter: 2014Q1

REPORT INFORMATION
  Report Type: Report from Study
  Country: FR (occurrence: FR)
  Receive Date: 20140225
  Receipt Date: 20140225
  Transmission Date: 20141002
  Serious: Yes (Hospitalization)
  Sender: FDA-Public Use
  Company Number: FR-ROCHE-1351158

PATIENT
  Sex: Female

DRUGS (7)
  1. RITUXIMAB [Suspect]
     Indication: RHEUMATOID ARTHRITIS
     Dosage: DAY 1
     Route: 065
     Dates: start: 20080514
  2. RITUXIMAB [Suspect]
     Dosage: DAY 15
     Route: 065
     Dates: start: 20080529
  3. METHOTREXATE [Concomitant]
     Route: 065
  4. METHOTREXATE [Concomitant]
     Route: 065
  5. METHOTREXATE [Concomitant]
     Route: 065
     Dates: start: 201309
  6. CORTANCYL [Concomitant]
     Route: 065
  7. CORTANCYL [Concomitant]
     Route: 065

REACTIONS (8)
  - Phlebectomy [Recovered/Resolved]
  - Dermatitis acneiform [Recovered/Resolved]
  - Headache [Unknown]
  - Vertigo [Recovered/Resolved]
  - Abdominal pain upper [Unknown]
  - Phlebitis superficial [Recovered/Resolved]
  - Lymphopenia [Unknown]
  - Vulvovaginal mycotic infection [Recovered/Resolved]
